FAERS Safety Report 7134612-1 (Version None)
Quarter: 2010Q4

REPORT INFORMATION
  Report Type: 
  Country: None (occurrence: None)
  Receive Date: 20101203
  Receipt Date: 20101122
  Transmission Date: 20110411
  Serious: Yes (Other)
  Sender: FDA-Public Use
  Company Number: PHHY2010SI79318

PATIENT
  Sex: Male

DRUGS (7)
  1. ZOLEDRONATE T29581+ [Suspect]
     Indication: PROPHYLAXIS
     Dosage: 4MG/5ML/28DAYS
     Route: 042
     Dates: start: 20070829
  2. ASPIRIN [Concomitant]
     Dosage: 100 MG, UNK
     Route: 048
     Dates: start: 20080101
  3. CASODEX [Concomitant]
     Dosage: 50 MG, QD
     Route: 048
     Dates: start: 20080101
  4. TRIPTORELIN [Concomitant]
     Dosage: ONCE IN 3 MONTH
     Route: 030
     Dates: start: 20080101
  5. ATORIS (ATORVASTATIN) [Concomitant]
     Dosage: UNK
     Route: 048
     Dates: start: 20080101
  6. OMNIC [Concomitant]
     Dosage: 1 TABLET
     Route: 048
     Dates: start: 20080101
  7. TELMISARTAN [Concomitant]
     Dosage: 1 TABLET
     Route: 048
     Dates: start: 20080101

REACTIONS (1)
  - PANCREATITIS [None]
